FAERS Safety Report 6175516-0 (Version None)
Quarter: 2009Q2

REPORT INFORMATION
  Report Type: 
  Country: None (occurrence: None)
  Receive Date: 20090429
  Receipt Date: 20090421
  Transmission Date: 20091009
  Serious: Yes (Hospitalization)
  Sender: FDA-Public Use
  Company Number: GXKR2009TR04887

PATIENT
  Age: 55 Year
  Sex: Female

DRUGS (3)
  1. DEXAMETHASONE [Suspect]
     Indication: BRAIN OEDEMA
     Dosage: 2 MG/DAY
  2. TEMOZOLOMIDE [Suspect]
     Indication: GLIOMA
     Dosage: 75 MA/M2/DAY
  3. GRANULOCYTE STIMULATING FACTORS (GRANULOCYTE COLONY STIMULATING FACTOR [Concomitant]

REACTIONS (7)
  - ASTHENIA [None]
  - CYTOMEGALOVIRUS INFECTION [None]
  - INTERSTITIAL LUNG DISEASE [None]
  - LEUKOPENIA [None]
  - LYMPHOPENIA [None]
  - OPPORTUNISTIC INFECTION [None]
  - THROMBOCYTOPENIA [None]
